FAERS Safety Report 8668519 (Version 2)
Quarter: 2012Q4

REPORT INFORMATION
  Report Type: 
  Country: JP (occurrence: JP)
  Receive Date: 20120717
  Receipt Date: 20120904
  Transmission Date: 20130627
  Serious: Yes (Hospitalization)
  Sender: FDA-Public Use
  Company Number: JP-GLAXOSMITHKLINE-B0814540A

PATIENT
  Age: 78 None
  Sex: Female
  Weight: 49 kg

DRUGS (8)
  1. ZOVIRAX [Suspect]
     Indication: MENINGITIS VIRAL
     Dosage: 1500MG Per day
     Route: 042
     Dates: start: 20120630, end: 20120703
  2. ROCEPHIN [Suspect]
     Indication: PRODUCT USED FOR UNKNOWN INDICATION
     Dosage: 4000MG Per day
     Route: 042
     Dates: start: 20120630, end: 20120703
  3. VICCILLIN [Suspect]
     Indication: PRODUCT USED FOR UNKNOWN INDICATION
     Dosage: 2000MG Per day
     Route: 042
     Dates: start: 20120630, end: 20120703
  4. VANCOMYCIN HYDROCHLORIDE [Suspect]
     Indication: PRODUCT USED FOR UNKNOWN INDICATION
     Dosage: 2000MG Per day
     Route: 042
     Dates: start: 20120630, end: 20120703
  5. ASPIRIN [Suspect]
     Indication: DIABETES MELLITUS
     Route: 048
  6. UNSPECIFIED INGREDIENT [Suspect]
     Indication: DYSLIPIDAEMIA
     Route: 048
  7. LOXONIN [Suspect]
     Indication: PRODUCT USED FOR UNKNOWN INDICATION
     Route: 065
  8. LYRICA [Suspect]
     Indication: PRODUCT USED FOR UNKNOWN INDICATION
     Route: 048

REACTIONS (11)
  - Altered state of consciousness [Recovered/Resolved]
  - Renal failure acute [Unknown]
  - Depressed level of consciousness [Recovered/Resolved]
  - Logorrhoea [Unknown]
  - Blood urea increased [Unknown]
  - Blood creatinine increased [Unknown]
  - Blood calcium decreased [Unknown]
  - Restlessness [Recovered/Resolved]
  - Encephalopathy [None]
  - Haemodialysis [None]
  - Dysarthria [None]
